FAERS Safety Report 16784859 (Version 1)
Quarter: 2019Q4

REPORT INFORMATION
  Report Type: Spontaneous
  Country: US (occurrence: US)
  Receive Date: 20190906
  Receipt Date: 20190906
  Transmission Date: 20200122
  Serious: Yes (Hospitalization)
  Sender: FDA-Public Use
  Company Number: None

PATIENT
  Age: 33 Year
  Sex: Male
  Weight: 74.25 kg

DRUGS (5)
  1. HALDOL [Suspect]
     Active Substance: HALOPERIDOL
     Dates: start: 20190902, end: 20190905
  2. LITHIUM. [Suspect]
     Active Substance: LITHIUM
  3. LISINOPRIL. [Concomitant]
     Active Substance: LISINOPRIL
  4. BENADRYL [Suspect]
     Active Substance: DIPHENHYDRAMINE HYDROCHLORIDE
  5. DEPAKOTE [Suspect]
     Active Substance: DIVALPROEX SODIUM

REACTIONS (2)
  - Adverse event [None]
  - Drug interaction [None]

NARRATIVE: CASE EVENT DATE: 20190902
